FAERS Safety Report 5020073-5 (Version None)
Quarter: 2006Q2

REPORT INFORMATION
  Report Type: 
  Country: None (occurrence: None)
  Receive Date: 20060607
  Receipt Date: 20060601
  Transmission Date: 20061013
  Serious: Yes (Hospitalization)
  Sender: FDA-Public Use
  Company Number: CH-GLAXOSMITHKLINE-B0426301A

PATIENT
  Age: 79 Year
  Sex: Female
  Weight: 61.2 kg

DRUGS (4)
  1. AUGMENTIN '125' [Suspect]
     Indication: ERYSIPELAS
     Dosage: 1G TWICE PER DAY
     Route: 048
     Dates: start: 20050513, end: 20050515
  2. ATENOLOL AND CHLORTHALIDONE [Suspect]
     Indication: ESSENTIAL HYPERTENSION
     Dosage: .5Z PER DAY
     Route: 048
     Dates: end: 20050515
  3. METOPROLOL [Concomitant]
     Indication: HYPERTENSION
  4. RAMIPRIL [Concomitant]
     Indication: HYPERTENSION

REACTIONS (9)
  - BLOOD OSMOLARITY INCREASED [None]
  - DIARRHOEA [None]
  - GENERAL PHYSICAL HEALTH DETERIORATION [None]
  - HYPOKALAEMIA [None]
  - HYPONATRAEMIA [None]
  - PYREXIA [None]
  - TACHYCARDIA [None]
  - VAGINAL CANDIDIASIS [None]
  - VOMITING [None]
